FAERS Safety Report 25059362 (Version 1)
Quarter: 2025Q1

REPORT INFORMATION
  Report Type: Spontaneous
  Country: US (occurrence: None)
  Receive Date: 20250308
  Receipt Date: 20250308
  Transmission Date: 20250409
  Serious: Yes (Disabling)
  Sender: FDA-CTU
  Company Number: None

PATIENT
  Age: 70 Year
  Sex: Female

DRUGS (10)
  1. GABAPENTIN [Suspect]
     Active Substance: GABAPENTIN
     Indication: Trigeminal neuralgia
     Dates: start: 20241012, end: 20241112
  2. BACLOFEN [Suspect]
     Active Substance: BACLOFEN
  3. DEXAMETHASONE [Suspect]
     Active Substance: DEXAMETHASONE
  4. LOSARTAN [Concomitant]
     Active Substance: LOSARTAN
  5. CLOBETASOL PROPIONATE [Concomitant]
     Active Substance: CLOBETASOL PROPIONATE
  6. VITAMIN D NOS [Concomitant]
     Active Substance: CHOLECALCIFEROL\ERGOCALCIFEROL
  7. guafeneisen [Concomitant]
  8. CHONDROITIN SULFATE (BOVINE)\GLUCOSAMINE HYDROCHLORIDE [Concomitant]
     Active Substance: CHONDROITIN SULFATE (BOVINE)\GLUCOSAMINE HYDROCHLORIDE
  9. VITAMIN B12 [Concomitant]
     Active Substance: CYANOCOBALAMIN
  10. COLLAGEN [Concomitant]
     Active Substance: COLLAGEN

REACTIONS (1)
  - Asthma [None]

NARRATIVE: CASE EVENT DATE: 20241015
